FAERS Safety Report 9500662 (Version 3)
Quarter: 2013Q4

REPORT INFORMATION
  Report Type: Report from Study
  Country: US (occurrence: US)
  Receive Date: 20130905
  Receipt Date: 20131021
  Transmission Date: 20140711
  Serious: Yes (Other)
  Sender: FDA-Public Use
  Company Number: US-SHIRE-ALL1-2013-05985

PATIENT
  Age: 54 Year
  Sex: Female
  Weight: 107.3 kg

DRUGS (2)
  1. 489 (LISDEXAMFETAMINE DIMESYLATE) [Suspect]
     Indication: BINGE EATING
     Dosage: 50 MG, 1X/DAY:QD
     Route: 048
     Dates: start: 20130703, end: 20130821
  2. 489 (LISDEXAMFETAMINE DIMESYLATE) [Suspect]
     Dosage: UNK UNK, UNKNOWN
     Route: 048
     Dates: start: 20130614

REACTIONS (1)
  - Syncope [Recovered/Resolved]
